FAERS Safety Report 9491549 (Version 1)
Quarter: 2013Q1

REPORT INFORMATION
  Report Type: Not Available
  Country: US (occurrence: US)
  Receive Date: 20121219
  Receipt Date: 20121219
  Transmission Date: 20140127
  Serious: Yes (Hospitalization)
  Sender: FDA-Public Use
  Company Number: US-LUNDBECK-DKLU1081503

PATIENT
  Sex: Male

DRUGS (1)
  1. ONFI [Suspect]
     Indication: EPILEPSY
     Route: 048
     Dates: start: 20120423

REACTIONS (5)
  - Convulsion [Unknown]
  - Local swelling [Unknown]
  - Constipation [Unknown]
  - Somnolence [Unknown]
  - Dysarthria [Unknown]
